FAERS Safety Report 6383184-8 (Version None)
Quarter: 2009Q3

REPORT INFORMATION
  Report Type: 
  Country: None (occurrence: None)
  Receive Date: 20090929
  Receipt Date: 20090918
  Transmission Date: 20100115
  Serious: Yes (Other)
  Sender: FDA-Public Use
  Company Number: 2009AP003819

PATIENT
  Age: 60 Year
  Sex: Female

DRUGS (3)
  1. TOPIRAMATE [Suspect]
     Indication: PAIN
     Dosage: 50 MG;BID;PO
     Dates: start: 20090421
  2. ANTIBIOTICS [Concomitant]
  3. TOPIRAMATE [Concomitant]

REACTIONS (3)
  - PNEUMONIA [None]
  - RESPIRATORY TRACT INFECTION [None]
  - URINARY INCONTINENCE [None]
